FAERS Safety Report 21687152 (Version 5)
Quarter: 2023Q1

REPORT INFORMATION
  Report Type: Spontaneous
  Country: GB (occurrence: GB)
  Receive Date: 20221206
  Receipt Date: 20230113
  Transmission Date: 20230418
  Serious: Yes (Hospitalization)
  Sender: FDA-Public Use
  Company Number: GB-MYLANLABS-2022M1134156

PATIENT
  Age: 69 Year
  Sex: Female

DRUGS (1)
  1. CLOZARIL [Suspect]
     Active Substance: CLOZAPINE
     Indication: Schizophrenia
     Dosage: UNK
     Route: 048
     Dates: start: 20020312, end: 20221117

REACTIONS (10)
  - Mental impairment [Unknown]
  - Dehydration [Unknown]
  - White blood cell count decreased [Unknown]
  - Sedation [Unknown]
  - Somnolence [Unknown]
  - Full blood count abnormal [Unknown]
  - Blood folate decreased [Unknown]
  - Haematocrit decreased [Not Recovered/Not Resolved]
  - Blood thyroid stimulating hormone increased [Unknown]
  - Red blood cell count decreased [Unknown]

NARRATIVE: CASE EVENT DATE: 20221117
